FAERS Safety Report 6071751-0 (Version None)
Quarter: 2009Q1

REPORT INFORMATION
  Report Type: 
  Country: None (occurrence: None)
  Receive Date: 20090209
  Receipt Date: 20090209
  Transmission Date: 20090719
  Serious: Yes (Other)
  Sender: FDA-Public Use
  Company Number: None

PATIENT
  Age: 64 Year
  Sex: Female
  Weight: 84.369 kg

DRUGS (1)
  1. PRISTIQ [Suspect]
     Indication: DEPRESSION
     Dates: start: 20090115

REACTIONS (4)
  - DYSPHAGIA [None]
  - DYSTONIA [None]
  - FLAT AFFECT [None]
  - TARDIVE DYSKINESIA [None]
